FAERS Safety Report 5587067-2 (Version None)
Quarter: 2008Q1

REPORT INFORMATION
  Report Type: 
  Country: None (occurrence: None)
  Receive Date: 20080110
  Receipt Date: 20080103
  Transmission Date: 20080703
  Serious: Yes (Other)
  Sender: FDA-Public Use
  Company Number: B0361278A

PATIENT
  Age: 51 Year
  Sex: Female

DRUGS (3)
  1. PAROXETINE HYDROCHLORIDE [Suspect]
     Route: 065
     Dates: start: 20000612
  2. OXAZEPAM [Concomitant]
     Dates: start: 20000605
  3. DIAZEPAM [Concomitant]
     Route: 065
     Dates: start: 20000214

REACTIONS (17)
  - AGITATION [None]
  - ANXIETY [None]
  - CRYING [None]
  - DEPRESSION [None]
  - DRUG WITHDRAWAL SYNDROME [None]
  - DYSSOMNIA [None]
  - FATIGUE [None]
  - FLASHBACK [None]
  - HYPERHIDROSIS [None]
  - INSOMNIA [None]
  - MYALGIA [None]
  - PALPITATIONS [None]
  - PANIC DISORDER [None]
  - POOR QUALITY SLEEP [None]
  - SOCIAL AVOIDANT BEHAVIOUR [None]
  - SOMNOLENCE [None]
  - SUICIDAL IDEATION [None]
